FAERS Safety Report 4650882-3 (Version None)
Quarter: 2005Q2

REPORT INFORMATION
  Report Type: 
  Country: None (occurrence: None)
  Receive Date: 20050428
  Receipt Date: 20050428
  Transmission Date: 20051028
  Serious: No
  Sender: FDA-Public Use
  Company Number: None

PATIENT
  Sex: Male
  Weight: 15.8759 kg

DRUGS (1)
  1. TANNIC-12 S  SUSPENSION 30 MG CARBETAPENTANE TANNATE AND 4 MG CHLORPHE [Suspect]
     Indication: COUGH
     Dosage: 1/2 TSPOON, 12 HR, ORAL
     Route: 048
     Dates: start: 20050325

REACTIONS (3)
  - RASH [None]
  - RESTLESSNESS [None]
  - THIRST [None]
